FAERS Safety Report 6940215-1 (Version None)
Quarter: 2010Q3

REPORT INFORMATION
  Report Type: 
  Country: None (occurrence: None)
  Receive Date: 20100825
  Receipt Date: 20100817
  Transmission Date: 20110219
  Serious: Yes (Other)
  Sender: FDA-Public Use
  Company Number: DE-JNJFOC-20100805345

PATIENT
  Sex: Female
  Weight: 70 kg

DRUGS (2)
  1. RISPERDAL [Suspect]
     Indication: PRODUCT USED FOR UNKNOWN INDICATION
     Route: 048
     Dates: start: 20100816, end: 20100816
  2. SEROQUEL [Suspect]
     Indication: PRODUCT USED FOR UNKNOWN INDICATION
     Route: 048
     Dates: start: 20100816, end: 20100816

REACTIONS (8)
  - CONVULSION [None]
  - FATIGUE [None]
  - HYPERTHERMIA [None]
  - MULTIPLE DRUG OVERDOSE INTENTIONAL [None]
  - SALIVARY HYPERSECRETION [None]
  - SOPOR [None]
  - SUICIDE ATTEMPT [None]
  - TACHYCARDIA [None]
